FAERS Safety Report 22980614 (Version 2)
Quarter: 2024Q3

REPORT INFORMATION
  Report Type: Report from Study
  Country: US (occurrence: US)
  Receive Date: 20230925
  Receipt Date: 20240827
  Transmission Date: 20241017
  Serious: Yes (Other)
  Sender: NOVARTIS
  Company Number: US-SANDOZ-SDZ2023US030909

PATIENT
  Sex: Male

DRUGS (2)
  1. ENTRESTO [Suspect]
     Active Substance: SACUBITRIL\VALSARTAN
     Indication: Product used for unknown indication
     Dosage: 49/51 MG, BID
     Route: 065
  2. LISINOPRIL [Suspect]
     Active Substance: LISINOPRIL
     Indication: Product used for unknown indication
     Dosage: UNK, (WAS ON LISINOPRIL FOR 8 YEARS (REPORTED ON 15 SEP 2023))
     Route: 065

REACTIONS (7)
  - Diabetes mellitus [Not Recovered/Not Resolved]
  - Renal impairment [Unknown]
  - Hypertension [Recovering/Resolving]
  - Dyspnoea exertional [Unknown]
  - COVID-19 [Unknown]
  - Nervousness [Unknown]
  - Contraindicated product administered [Unknown]
